FAERS Safety Report 14400254 (Version 2)
Quarter: 2018Q1

REPORT INFORMATION
  Report Type: Spontaneous
  Country: US (occurrence: US)
  Receive Date: 20180117
  Receipt Date: 20180301
  Transmission Date: 20180509
  Serious: No
  Sender: FDA-Public Use
  Company Number: US-JNJFOC-20171134952

PATIENT
  Age: 83 Year
  Sex: Male

DRUGS (3)
  1. ZYTIGA [Suspect]
     Active Substance: ABIRATERONE ACETATE
     Indication: PRODUCT USED FOR UNKNOWN INDICATION
     Route: 048
     Dates: start: 20171126
  2. ZYTIGA [Suspect]
     Active Substance: ABIRATERONE ACETATE
     Indication: PRODUCT USED FOR UNKNOWN INDICATION
     Route: 048
     Dates: start: 20171229, end: 20180116
  3. ZYTIGA [Suspect]
     Active Substance: ABIRATERONE ACETATE
     Indication: PRODUCT USED FOR UNKNOWN INDICATION
     Route: 048
     Dates: start: 20170920

REACTIONS (6)
  - Rash [Not Recovered/Not Resolved]
  - Asthenia [Not Recovered/Not Resolved]
  - Fall [Not Recovered/Not Resolved]
  - Drug dose omission [Unknown]
  - Renal pain [Recovering/Resolving]
  - Hypertension [Recovered/Resolved]

NARRATIVE: CASE EVENT DATE: 20180116
